FAERS Safety Report 13139132 (Version 2)
Quarter: 2017Q1

REPORT INFORMATION
  Report Type: Spontaneous
  Country: US (occurrence: US)
  Receive Date: 20170123
  Receipt Date: 20170210
  Transmission Date: 20170428
  Serious: Yes (Other)
  Sender: FDA-Public Use
  Company Number: US-LPDUSPRD-20170025

PATIENT
  Sex: Female

DRUGS (1)
  1. TRANEXAMIC ACID INJECTION(0517-0960-01) [Suspect]
     Active Substance: TRANEXAMIC ACID
     Dosage: UNKNOWN
     Route: 047
     Dates: start: 20170109

REACTIONS (3)
  - Accidental exposure to product [Unknown]
  - Vision blurred [Unknown]
  - Chemical burns of eye [Unknown]

NARRATIVE: CASE EVENT DATE: 20170109
